FAERS Safety Report 4288724-0 (Version None)
Quarter: 2004Q1

REPORT INFORMATION
  Report Type: 
  Country: None (occurrence: None)
  Receive Date: 20040209
  Receipt Date: 20040203
  Transmission Date: 20041129
  Serious: Yes (Hospitalization)
  Sender: FDA-Public Use
  Company Number: WAES 0402FRA00005

PATIENT
  Age: 70 Year
  Sex: Male

DRUGS (3)
  1. LISINOPRIL [Concomitant]
     Indication: HYPERTENSION
     Route: 048
     Dates: end: 20031120
  2. OXAZEPAM [Concomitant]
     Indication: SLEEP DISORDER
     Route: 048
  3. VIOXX [Suspect]
     Indication: ARTHROPATHY
     Route: 048
     Dates: end: 20031120

REACTIONS (3)
  - BIOPSY OESOPHAGUS ABNORMAL [None]
  - GASTROINTESTINAL STENOSIS [None]
  - OESOPHAGITIS [None]
